FAERS Safety Report 14406676 (Version 1)
Quarter: 2018Q1

REPORT INFORMATION
  Report Type: Spontaneous
  Country: US (occurrence: US)
  Receive Date: 20180118
  Receipt Date: 20180118
  Transmission Date: 20180509
  Serious: No
  Sender: FDA-Public Use
  Company Number: US-BAYER-2018-010949

PATIENT
  Age: 72 Year
  Sex: Male
  Weight: 68.03 kg

DRUGS (1)
  1. MIRALAX [Suspect]
     Active Substance: POLYETHYLENE GLYCOL 3350
     Indication: GASTROINTESTINAL DISORDER
     Dosage: 1 DF, QD
     Route: 048
     Dates: start: 201701

REACTIONS (3)
  - Off label use [None]
  - Product use issue [None]
  - Liquid product physical issue [None]

NARRATIVE: CASE EVENT DATE: 201701
